FAERS Safety Report 4270439-6 (Version None)
Quarter: 2004Q1

REPORT INFORMATION
  Report Type: 
  Country: None (occurrence: None)
  Receive Date: 20040114
  Receipt Date: 20031017
  Transmission Date: 20041129
  Serious: Yes (Death)
  Sender: FDA-Public Use
  Company Number: US-GLAXOSMITHKLINE-A0430936A

PATIENT
  Age: 75 Year
  Sex: Female

DRUGS (2)
  1. ALKERAN [Suspect]
     Indication: ILL-DEFINED DISORDER
     Route: 065
  2. PREDNISONE [Suspect]

REACTIONS (1)
  - LEUKAEMIA PLASMACYTIC [None]
